FAERS Safety Report 8426977-5 (Version None)
Quarter: 2012Q2

REPORT INFORMATION
  Report Type: 
  Country: None (occurrence: None)
  Receive Date: 20120611
  Receipt Date: 20120607
  Transmission Date: 20120825
  Serious: Yes (Hospitalization)
  Sender: FDA-Public Use
  Company Number: FR-ROCHE-1068834

PATIENT
  Sex: Female

DRUGS (3)
  1. CELLCEPT [Suspect]
     Indication: TRANSPLANT REJECTION
     Route: 002
     Dates: start: 20120128
  2. EVEROLIMUS [Suspect]
     Indication: TRANSPLANT REJECTION
     Route: 002
     Dates: start: 20120312, end: 20120512
  3. PREDNISOLONE [Suspect]
     Indication: TRANSPLANT REJECTION
     Dates: start: 20120129, end: 20120511

REACTIONS (1)
  - TRANSPLANT REJECTION [None]
